FAERS Safety Report 25223127 (Version 1)
Quarter: 2025Q2

REPORT INFORMATION
  Report Type: Spontaneous
  Country: FR (occurrence: FR)
  Receive Date: 20250422
  Receipt Date: 20250422
  Transmission Date: 20250717
  Serious: Yes (Other)
  Sender: FRESENIUS KABI
  Company Number: None

PATIENT
  Age: 34 Year
  Sex: Male

DRUGS (2)
  1. ROCURONIUM BROMIDE [Suspect]
     Active Substance: ROCURONIUM BROMIDE
     Indication: Product used for unknown indication
     Route: 042
     Dates: start: 20240115
  2. SUGAMMADEX SODIUM [Suspect]
     Active Substance: SUGAMMADEX SODIUM
     Indication: Anaesthesia
     Route: 042
     Dates: start: 20240115

REACTIONS (3)
  - Drug ineffective [Recovered/Resolved]
  - Wrong product administered [Recovered/Resolved]
  - Recurrence of neuromuscular blockade [Recovered/Resolved]

NARRATIVE: CASE EVENT DATE: 20240115
